FAERS Safety Report 6568273-7 (Version None)
Quarter: 2010Q1

REPORT INFORMATION
  Report Type: 
  Country: None (occurrence: None)
  Receive Date: 20100128
  Receipt Date: 20100113
  Transmission Date: 20100710
  Serious: Yes (Death, Hospitalization)
  Sender: FDA-Public Use
  Company Number: 004739

PATIENT
  Age: 21 Year
  Sex: Female

DRUGS (9)
  1. HYDROCORTONE [Suspect]
     Dosage: (200 MG QID)
  2. PREDNISOLONE [Suspect]
     Dosage: (7.5 MG QD ORAL)
     Route: 048
  3. CYCLOSPORINE [Suspect]
     Indication: PUSTULAR PSORIASIS
  4. ENBREL [Suspect]
     Dosage: (25 MG 2X/WEEK SUBCUTANEOUS)
     Route: 058
  5. METHOTREXATE [Suspect]
     Dosage: (12.5 MG 1X/WEEK SUBCUTANEOUS)
     Route: 058
  6. ACITRETIN [Concomitant]
  7. DROTRECOGIN ALFA [Concomitant]
  8. RIFAMPICIN [Concomitant]
  9. VANCOMYCIN [Concomitant]

REACTIONS (17)
  - ABDOMINAL PAIN [None]
  - ARTHRALGIA [None]
  - BLOOD CULTURE POSITIVE [None]
  - DISSEMINATED INTRAVASCULAR COAGULATION [None]
  - HEADACHE [None]
  - HYPOALBUMINAEMIA [None]
  - HYPOTENSION [None]
  - INFECTION IN AN IMMUNOCOMPROMISED HOST [None]
  - NAUSEA [None]
  - NORMOCHROMIC NORMOCYTIC ANAEMIA [None]
  - NOSOCOMIAL INFECTION [None]
  - ORGANISING PNEUMONIA [None]
  - PUSTULAR PSORIASIS [None]
  - RECTAL HAEMORRHAGE [None]
  - STAPHYLOCOCCAL INFECTION [None]
  - SYNOVITIS [None]
  - TUBERCULOSIS [None]
